FAERS Safety Report 7083175-8 (Version None)
Quarter: 2010Q4

REPORT INFORMATION
  Report Type: 
  Country: None (occurrence: None)
  Receive Date: 20101026
  Receipt Date: 20101015
  Transmission Date: 20110411
  Serious: Yes (Other)
  Sender: FDA-Public Use
  Company Number: 2010EU005494

PATIENT
  Age: 80 Year
  Sex: Female
  Weight: 75 kg

DRUGS (1)
  1. VESICARE [Suspect]
     Indication: HYPERTONIC BLADDER
     Dosage: 5MG, UID/QD, ORAL
     Route: 048
     Dates: start: 20091115

REACTIONS (4)
  - ABDOMINAL PAIN UPPER [None]
  - DRY EYE [None]
  - DRY MOUTH [None]
  - VULVOVAGINAL DRYNESS [None]
